FAERS Safety Report 10454437 (Version 1)
Quarter: 2014Q3

REPORT INFORMATION
  Report Type: Spontaneous
  Country: AU (occurrence: AU)
  Receive Date: 20140915
  Receipt Date: 20140915
  Transmission Date: 20150326
  Serious: Yes (Life-Threatening)
  Sender: FDA-Public Use
  Company Number: AU-BAXTER-2014BAX053081

PATIENT
  Age: 63 Year
  Sex: Female
  Weight: 53.6 kg

DRUGS (2)
  1. BAXTER 5% GLUCOSE 25G_500ML INJECTION BP BAG AHB0063 [Suspect]
     Active Substance: DEXTROSE
     Indication: PRODUCT USED FOR UNKNOWN INDICATION
     Route: 065
     Dates: start: 20140825, end: 20140825
  2. OXALIPLATIN. [Suspect]
     Active Substance: OXALIPLATIN
     Indication: PRODUCT USED FOR UNKNOWN INDICATION
     Route: 065
     Dates: start: 20140825, end: 20140825

REACTIONS (3)
  - Oxygen saturation decreased [Recovered/Resolved]
  - Stridor [Recovered/Resolved]
  - Blood pressure increased [Recovered/Resolved]

NARRATIVE: CASE EVENT DATE: 20140825
